FAERS Safety Report 18819873 (Version 1)
Quarter: 2021Q1

REPORT INFORMATION
  Report Type: Spontaneous
  Country: ES (occurrence: ES)
  Receive Date: 20210202
  Receipt Date: 20210202
  Transmission Date: 20210419
  Serious: Yes (Hospitalization, Other)
  Sender: FDA-Public Use
  Company Number: ES-LUPIN PHARMACEUTICALS INC.-2021-01019

PATIENT
  Age: 6 Year
  Sex: Female
  Weight: 27.2 kg

DRUGS (1)
  1. TRIAMCINOLONE ACETONIDE. [Suspect]
     Active Substance: TRIAMCINOLONE ACETONIDE
     Indication: PRODUCT USED FOR UNKNOWN INDICATION
     Dosage: UNK (RECEIVED DEPOT INFILTRATION IN ANKLE^S GANGLION (EQUIPOTENT X4:16 MG/M 2))
     Route: 014
     Dates: start: 2019

REACTIONS (1)
  - Cushing^s syndrome [Recovering/Resolving]

NARRATIVE: CASE EVENT DATE: 2019
